FAERS Safety Report 5511238-4 (Version None)
Quarter: 2007Q4

REPORT INFORMATION
  Report Type: 
  Country: None (occurrence: None)
  Receive Date: 20071109
  Receipt Date: 20071029
  Transmission Date: 20080405
  Serious: Yes (Death, Life-Threatening, Hospitalization)
  Sender: FDA-Public Use
  Company Number: DE-ROCHE-528571

PATIENT
  Age: 51 Year
  Sex: Female

DRUGS (9)
  1. CELLCEPT [Suspect]
     Indication: RENAL TRANSPLANT
     Dosage: FREQUENCY NOT PROVIDED.
     Route: 048
     Dates: start: 20060904, end: 20060911
  2. BASILIXIMAB [Suspect]
     Indication: RENAL TRANSPLANT
     Dosage: FREQUENCY NOT REPORTED.
     Route: 042
     Dates: start: 20060912, end: 20060912
  3. BASILIXIMAB [Suspect]
     Route: 042
     Dates: start: 20060916
  4. SPANIDIN [Suspect]
     Indication: DRUG USE FOR UNKNOWN INDICATION
     Dosage: FREQUENCY NOT REPORTED.
     Route: 042
     Dates: start: 20060912, end: 20060914
  5. MEDROL [Concomitant]
     Dates: start: 20060914, end: 20060920
  6. RITUXIMAB [Concomitant]
     Dates: start: 20060920
  7. NEORAL [Concomitant]
     Dates: start: 20060904, end: 20060921
  8. SANDIMMUNE [Concomitant]
     Dates: start: 20060912, end: 20060925
  9. SOLU-MEDROL [Concomitant]
     Dates: start: 20060912, end: 20060923

REACTIONS (5)
  - CEREBRAL HAEMORRHAGE [None]
  - LOSS OF CONSCIOUSNESS [None]
  - MUSCLE RIGIDITY [None]
  - PLATELET COUNT DECREASED [None]
  - RESPIRATORY ARREST [None]
